FAERS Safety Report 8482473-0 (Version None)
Quarter: 2012Q3

REPORT INFORMATION
  Report Type: 
  Country: None (occurrence: None)
  Receive Date: 20120702
  Receipt Date: 20120621
  Transmission Date: 20120928
  Serious: Yes (Other)
  Sender: FDA-Public Use
  Company Number: FR-JNJFOC-20120612103

PATIENT
  Age: 25 Year
  Sex: Female

DRUGS (1)
  1. ORTHO EVRA [Suspect]
     Indication: CONTRACEPTION
     Route: 062
     Dates: start: 20120614

REACTIONS (3)
  - FEELING HOT [None]
  - HYPOAESTHESIA [None]
  - FEELING ABNORMAL [None]
